FAERS Safety Report 8514097-0 (Version None)
Quarter: 2012Q3

REPORT INFORMATION
  Report Type: 
  Country: None (occurrence: None)
  Receive Date: 20120717
  Receipt Date: 20120706
  Transmission Date: 20120928
  Serious: Yes (Hospitalization)
  Sender: FDA-Public Use
  Company Number: JP-MSD-1207JPN000769

PATIENT

DRUGS (10)
  1. CANDESARTAN CILEXETIL [Concomitant]
     Indication: HYPERTENSION
     Dosage: 8 MG, UNK, MORNING, EVENING
     Route: 048
  2. TELAPREVIR [Concomitant]
     Indication: HEPATITIS C
     Dosage: 1500 MG, QD
     Route: 048
     Dates: start: 20120411, end: 20120606
  3. REBETOL [Suspect]
     Indication: HEPATITIS C
     Dosage: 600 MG, QD
     Route: 048
     Dates: start: 20120411, end: 20120522
  4. ALLOPURINOL [Concomitant]
     Indication: HYPERURICAEMIA
     Dosage: 100 MG, QD
     Dates: start: 20120418
  5. PEG-INTRON [Suspect]
     Indication: HEPATITIS C
     Dosage: 1.5 MICROGRAM PER KILOGRAM, QW
     Route: 042
     Dates: start: 20120411, end: 20120606
  6. PEG-INTRON [Suspect]
     Dosage: DAILY DOSE UNKNOWN
     Route: 042
     Dates: start: 20120613
  7. TELAPREVIR [Concomitant]
     Dosage: 750 MG, QD
     Route: 048
     Dates: start: 20120613
  8. REBETOL [Suspect]
     Dosage: 400 MG, QD
     Route: 048
     Dates: start: 20120523, end: 20120606
  9. NORVASC [Concomitant]
     Indication: HYPERTENSION
     Dosage: 5 MG, UNK, MORNING
     Route: 048
  10. ALLEGRA [Concomitant]
     Indication: RHINITIS ALLERGIC
     Dosage: 120 MG, UNK
     Route: 048

REACTIONS (1)
  - PYELONEPHRITIS ACUTE [None]
